FAERS Safety Report 12236276 (Version 4)
Quarter: 2016Q2

REPORT INFORMATION
  Report Type: Spontaneous
  Country: JP (occurrence: JP)
  Receive Date: 20160404
  Receipt Date: 20160511
  Transmission Date: 20160815
  Serious: Yes (Disabling, Other)
  Sender: FDA-Public Use
  Company Number: JP-PFIZER INC-2016184771

PATIENT
  Age: 79 Year
  Sex: Female

DRUGS (8)
  1. MAGMITT [Concomitant]
     Active Substance: MAGNESIUM OXIDE
     Dosage: UNK
  2. ALOSENN [Concomitant]
     Active Substance: SENNA LEAF
     Dosage: UNK
  3. PERORIC [Concomitant]
     Dosage: UNK
  4. DONEPEZIL HCL [Interacting]
     Active Substance: DONEPEZIL HYDROCHLORIDE
     Indication: DEMENTIA ALZHEIMER^S TYPE
     Dosage: UNK
  5. TIAPRIDE [Concomitant]
     Active Substance: TIAPRIDE
     Dosage: UNK
  6. MEMARY [Concomitant]
     Active Substance: MEMANTINE HYDROCHLORIDE
     Dosage: UNK
  7. TOVIAZ [Suspect]
     Active Substance: FESOTERODINE FUMARATE
     Indication: HYPERTONIC BLADDER
     Dosage: 4 MG, DAILY
     Route: 048
     Dates: start: 20160309, end: 20160321
  8. NIZATIDINE. [Concomitant]
     Active Substance: NIZATIDINE
     Dosage: UNK

REACTIONS (2)
  - Drug interaction [Unknown]
  - Cognitive disorder [Unknown]

NARRATIVE: CASE EVENT DATE: 20160319
